FAERS Safety Report 18384702 (Version 1)
Quarter: 2020Q4

REPORT INFORMATION
  Report Type: Report from Study
  Country: CR (occurrence: CR)
  Receive Date: 20201015
  Receipt Date: 20201015
  Transmission Date: 20210114
  Serious: Yes (Other)
  Sender: FDA-Public Use
  Company Number: NVSC2020CR274324

PATIENT
  Age: 69 Year
  Sex: Male

DRUGS (1)
  1. GALVUS MET [Suspect]
     Active Substance: METFORMIN HYDROCHLORIDE\VILDAGLIPTIN
     Indication: PRODUCT USED FOR UNKNOWN INDICATION
     Dosage: 1000/50 MG
     Route: 065

REACTIONS (3)
  - Sleep disorder [Unknown]
  - Diabetes mellitus [Unknown]
  - Blood glucose increased [Unknown]
